FAERS Safety Report 5811358-0 (Version None)
Quarter: 2008Q3

REPORT INFORMATION
  Report Type: 
  Country: None (occurrence: None)
  Receive Date: 20080716
  Receipt Date: 20080707
  Transmission Date: 20090109
  Serious: Yes (Hospitalization)
  Sender: FDA-Public Use
  Company Number: US-ABBOTT-08P-163-0459741-00

PATIENT
  Sex: Female
  Weight: 46.308 kg

DRUGS (1)
  1. HUMIRA [Suspect]
     Indication: CROHN'S DISEASE
     Dosage: LOADING DOSE
     Route: 058
     Dates: start: 20080612

REACTIONS (4)
  - INJECTION SITE IRRITATION [None]
  - INTESTINAL OBSTRUCTION [None]
  - RASH PRURITIC [None]
  - UNDERDOSE [None]
